FAERS Safety Report 7287102-X (Version None)
Quarter: 2011Q1

REPORT INFORMATION
  Report Type: 
  Country: None (occurrence: None)
  Receive Date: 20110211
  Receipt Date: 20091116
  Transmission Date: 20110831
  Serious: No
  Sender: FDA-Public Use
  Company Number: 2009BI037528

PATIENT
  Sex: Female

DRUGS (1)
  1. TYSABRI [Suspect]
     Indication: MULTIPLE SCLEROSIS
     Route: 042
     Dates: start: 20080103

REACTIONS (9)
  - FALL [None]
  - LOWER LIMB FRACTURE [None]
  - DYSSTASIA [None]
  - FATIGUE [None]
  - AGEUSIA [None]
  - DRUG EFFECT DECREASED [None]
  - ASTHENIA [None]
  - BONE DENSITY DECREASED [None]
  - MALAISE [None]
